FAERS Safety Report 9023772 (Version 5)
Quarter: 2015Q1

REPORT INFORMATION
  Report Type: Spontaneous
  Country: US (occurrence: US)
  Receive Date: 20130121
  Receipt Date: 20150109
  Transmission Date: 20150721
  Serious: No
  Sender: FDA-Public Use
  Company Number: US-PFIZER INC-2013024492

PATIENT
  Age: 97 Year
  Sex: Female
  Weight: 45.35 kg

DRUGS (8)
  1. NEURONTIN [Suspect]
     Active Substance: GABAPENTIN
     Indication: NEUROPATHY PERIPHERAL
     Dosage: 100 MG, (AT NIGHT)
     Route: 048
     Dates: start: 2011
  2. ALENDRONATE SODIUM. [Concomitant]
     Active Substance: ALENDRONATE SODIUM
     Dosage: 70 MG, WEEKLY
  3. NEURONTIN [Suspect]
     Active Substance: GABAPENTIN
     Indication: NEURALGIA
     Dosage: 100 MG, UNK
     Route: 048
  4. XALATAN [Concomitant]
     Active Substance: LATANOPROST
     Indication: CATARACT
     Dosage: 1 GTT EACH EYE, 1X/DAY
     Route: 031
     Dates: start: 2011
  5. NEURONTIN [Suspect]
     Active Substance: GABAPENTIN
     Dosage: 100 MG, BEFORE BEDTIME
     Route: 048
     Dates: start: 201501
  6. NEURONTIN [Suspect]
     Active Substance: GABAPENTIN
     Dosage: 100 MG, BEFORE BEDTIME
     Route: 048
     Dates: start: 201412
  7. XALATAN [Concomitant]
     Active Substance: LATANOPROST
     Indication: GLAUCOMA
  8. TYLENOL WITH CODEINE [Concomitant]
     Active Substance: ACETAMINOPHEN\CODEINE PHOSPHATE
     Indication: PAIN IN EXTREMITY
     Dosage: 5/500MG; 1/2 A TABLET, AS NEEDED

REACTIONS (5)
  - Somnolence [Unknown]
  - Visual acuity reduced [Unknown]
  - Hypersomnia [Unknown]
  - Dizziness [Unknown]
  - Product use issue [Unknown]

NARRATIVE: CASE EVENT DATE: 2011
